FAERS Safety Report 20255678 (Version 7)
Quarter: 2022Q2

REPORT INFORMATION
  Report Type: Other
  Country: BR (occurrence: None)
  Receive Date: 20211230
  Receipt Date: 20220421
  Transmission Date: 20220721
  Serious: Yes (Hospitalization, Other)
  Sender: FDA-Public Use
  Company Number: BR-ROCHE-2984795

PATIENT
  Age: 37 Year
  Sex: Male
  Weight: 70 kg

DRUGS (6)
  1. OCREVUS [Suspect]
     Active Substance: OCRELIZUMAB
     Indication: Multiple sclerosis
     Dosage: 300MG/10ML
     Route: 042
     Dates: start: 20200511
  2. SERTRALINE [Concomitant]
     Active Substance: SERTRALINE HYDROCHLORIDE
     Dosage: TABLETS AT NIGHT
  3. AMANTADINE HYDROCHLORIDE [Concomitant]
     Active Substance: AMANTADINE HYDROCHLORIDE
     Dosage: 100 MMG (AS REPORTED) 1 TABLET IN THE MORNING AND 1 TABLET IN THE EVENING
  4. DIAZEPAM [Concomitant]
     Active Substance: DIAZEPAM
     Dosage: 1 TABLET IN THE EVENING
     Route: 048
  5. OXYBUTYNIN CHLORIDE [Concomitant]
     Active Substance: OXYBUTYNIN CHLORIDE
     Dosage: TABLET
  6. AMIKACIN [Concomitant]
     Active Substance: AMIKACIN

REACTIONS (6)
  - Urinary tract infection [Not Recovered/Not Resolved]
  - Nephrolithiasis [Unknown]
  - Blindness [Not Recovered/Not Resolved]
  - Bedridden [Not Recovered/Not Resolved]
  - Gait disturbance [Not Recovered/Not Resolved]
  - Pneumonia [Unknown]

NARRATIVE: CASE EVENT DATE: 20210201
